FAERS Safety Report 11231069 (Version 1)
Quarter: 2015Q2

REPORT INFORMATION
  Report Type: Spontaneous
  Country: US (occurrence: None)
  Receive Date: 20150629
  Receipt Date: 20150629
  Transmission Date: 20150821
  Serious: Yes (Other)
  Sender: FDA-Public Use
  Company Number: None

PATIENT
  Age: 36 Year
  Sex: Male
  Weight: 81.65 kg

DRUGS (3)
  1. PREDNISONE 10 MG WEST [Suspect]
     Active Substance: PREDNISONE
     Indication: ALLERGY TO ARTHROPOD STING
     Dosage: 1 PILL
     Route: 048
     Dates: start: 20150622, end: 20150625
  2. RANITIDINE/ZANTAC [Concomitant]
  3. BACK/BODY ASPIRIN [Concomitant]

REACTIONS (10)
  - Insomnia [None]
  - Delusion [None]
  - Aggression [None]
  - Emotional disorder [None]
  - Fear [None]
  - Crying [None]
  - Anger [None]
  - Retching [None]
  - Paranoia [None]
  - Agitation [None]

NARRATIVE: CASE EVENT DATE: 20150622
